FAERS Safety Report 5195149-2 (Version None)
Quarter: 2006Q4

REPORT INFORMATION
  Report Type: 
  Country: None (occurrence: None)
  Receive Date: 20061229
  Receipt Date: 20060523
  Transmission Date: 20070319
  Serious: Yes (Hospitalization)
  Sender: FDA-Public Use
  Company Number: US-PFIZER INC-2006067190

PATIENT
  Sex: Female
  Weight: 98.9 kg

DRUGS (13)
  1. SUTENT [Suspect]
     Indication: METASTATIC MALIGNANT MELANOMA
     Route: 048
     Dates: start: 20060503, end: 20060521
  2. TEMOZOLOMIDE [Suspect]
     Indication: METASTATIC MALIGNANT MELANOMA
     Route: 048
     Dates: start: 20060426, end: 20060502
  3. TEMOZOLOMIDE [Suspect]
     Route: 048
     Dates: start: 20060510, end: 20060515
  4. SKELAXIN [Concomitant]
  5. VALSARTAN [Concomitant]
  6. INDAPAMIDE [Concomitant]
  7. CLARINEX [Concomitant]
  8. MOBIC [Concomitant]
  9. NEXIUM [Concomitant]
  10. PEPCID [Concomitant]
  11. QUININE SULFATE [Concomitant]
  12. SEREVENT [Concomitant]
  13. TRIAMCINOLONE [Concomitant]

REACTIONS (11)
  - BLOOD CREATININE INCREASED [None]
  - COLITIS [None]
  - DEHYDRATION [None]
  - DIARRHOEA [None]
  - FEBRILE NEUTROPENIA [None]
  - MUCOSAL INFLAMMATION [None]
  - NAUSEA [None]
  - PANCYTOPENIA [None]
  - RENAL FAILURE ACUTE [None]
  - URINARY TRACT INFECTION [None]
  - VOMITING [None]
